FAERS Safety Report 11642432 (Version 2)
Quarter: 2017Q1

REPORT INFORMATION
  Report Type: Spontaneous
  Country: US (occurrence: US)
  Receive Date: 20151019
  Receipt Date: 20170315
  Transmission Date: 20170428
  Serious: No
  Sender: FDA-Public Use
  Company Number: US-ASTRAZENECA-2011BM04781

PATIENT
  Sex: Female

DRUGS (6)
  1. BYETTA [Suspect]
     Active Substance: EXENATIDE
     Indication: TYPE 2 DIABETES MELLITUS
     Route: 058
     Dates: start: 20110117
  2. EXENATIDE [Concomitant]
     Active Substance: EXENATIDE
  3. BYDUREON [Suspect]
     Active Substance: EXENATIDE
     Route: 058
  4. BYETTA [Suspect]
     Active Substance: EXENATIDE
     Indication: TYPE 2 DIABETES MELLITUS
     Route: 058
     Dates: start: 201005
  5. BYETTA [Suspect]
     Active Substance: EXENATIDE
     Indication: TYPE 2 DIABETES MELLITUS
     Route: 058
  6. METFORMIN [Concomitant]
     Active Substance: METFORMIN HYDROCHLORIDE

REACTIONS (6)
  - Injection site pain [Unknown]
  - Visual impairment [Unknown]
  - Injection site mass [Unknown]
  - Memory impairment [Unknown]
  - Product quality issue [Unknown]
  - Blood glucose increased [Unknown]
